FAERS Safety Report 17239951 (Version 3)
Quarter: 2020Q1

REPORT INFORMATION
  Report Type: Spontaneous
  Country: US (occurrence: US)
  Receive Date: 20200106
  Receipt Date: 20200323
  Transmission Date: 20200409
  Serious: Yes (Hospitalization)
  Sender: FDA-Public Use
  Company Number: US-TAKEDA-2020TUS000289

PATIENT
  Sex: Male
  Weight: 96.15 kg

DRUGS (1)
  1. NINLARO [Suspect]
     Active Substance: IXAZOMIB CITRATE
     Indication: PLASMA CELL MYELOMA
     Dosage: 4 MILLIGRAM
     Route: 048
     Dates: start: 20191028

REACTIONS (4)
  - Blood pressure abnormal [Unknown]
  - Pneumonia [Unknown]
  - Cardiac disorder [Unknown]
  - Diarrhoea [Not Recovered/Not Resolved]
